FAERS Safety Report 5287448-0 (Version None)
Quarter: 2007Q1

REPORT INFORMATION
  Report Type: 
  Country: None (occurrence: None)
  Receive Date: 20070116
  Receipt Date: 20060926
  Transmission Date: 20070707
  Serious: No
  Sender: FDA-Public Use
  Company Number: 2006SP003421

PATIENT
  Age: 60 Year
  Sex: Female
  Weight: 56.6996 kg

DRUGS (5)
  1. LUNESTA [Suspect]
     Indication: INSOMNIA
     Dosage: 3 MG 1X ORAL
     Route: 048
     Dates: start: 20060925, end: 20060925
  2. SYNTHROID [Concomitant]
  3. SERZONE [Concomitant]
  4. VITAMINS [Concomitant]
  5. EYE DROPS [Concomitant]

REACTIONS (3)
  - DYSGEUSIA [None]
  - HANGOVER [None]
  - SOMNOLENCE [None]
